FAERS Safety Report 4381472-8 (Version None)
Quarter: 2004Q2

REPORT INFORMATION
  Report Type: 
  Country: None (occurrence: None)
  Receive Date: 20040615
  Receipt Date: 20040602
  Transmission Date: 20050107
  Serious: Yes (Other)
  Sender: FDA-Public Use
  Company Number: 2004-02521

PATIENT
  Age: 22 Year
  Sex: Male

DRUGS (7)
  1. ANDRODERM [Suspect]
     Indication: HYPOPITUITARISM
     Dosage: 1 PATCH, DAILY, TRANSDERMAL
     Route: 062
     Dates: start: 20021001, end: 20030801
  2. LANTUS [Concomitant]
  3. SYNTHROID [Concomitant]
  4. CORTEF [Concomitant]
  5. URSO [Concomitant]
  6. DDAVP [Concomitant]
  7. EMORRIL (NIFURATEL) [Concomitant]

REACTIONS (1)
  - HEPATIC CIRRHOSIS [None]
